FAERS Safety Report 11400127 (Version 2)
Quarter: 2015Q3

REPORT INFORMATION
  Report Type: Report from Study
  Country: AU (occurrence: AU)
  Receive Date: 20150820
  Receipt Date: 20150908
  Transmission Date: 20151125
  Serious: Yes (Hospitalization, Other)
  Sender: FDA-Public Use
  Company Number: AU-BAYER-2015-370944

PATIENT
  Age: 79 Year
  Sex: Female

DRUGS (2)
  1. XARELTO [Suspect]
     Active Substance: RIVAROXABAN
     Indication: ATRIAL FIBRILLATION
     Dosage: UNK
     Dates: start: 20150714
  2. BETAFERON [Suspect]
     Active Substance: INTERFERON BETA-1B
     Indication: MULTIPLE SCLEROSIS
     Dosage: 250 MCG/ML, QOD
     Route: 058
     Dates: start: 19990101

REACTIONS (11)
  - Cardiomyopathy [Recovering/Resolving]
  - Hiatus hernia [Recovering/Resolving]
  - Atrial fibrillation [Recovering/Resolving]
  - Syncope [Recovering/Resolving]
  - Gastrointestinal angiodysplasia [None]
  - Asthenia [Recovering/Resolving]
  - Injection site pain [Unknown]
  - Haematemesis [Recovering/Resolving]
  - Weight decreased [Unknown]
  - Hypertension [None]
  - Cardiac failure congestive [Recovering/Resolving]

NARRATIVE: CASE EVENT DATE: 2003
